FAERS Safety Report 8001323-X (Version None)
Quarter: 2011Q4

REPORT INFORMATION
  Report Type: 
  Country: None (occurrence: None)
  Receive Date: 20111219
  Receipt Date: 20111205
  Transmission Date: 20120403
  Serious: Yes (Hospitalization)
  Sender: FDA-Public Use
  Company Number: FK201102864

PATIENT
  Age: 65 Year
  Sex: Female

DRUGS (3)
  1. RITUXAN [Suspect]
     Indication: CHRONIC LYMPHOCYTIC LEUKAEMIA
     Dosage: 750 MG, FOR ONE DAY EVERY 4 WEEKS, INTRAVENOUS (NOT OTHERWISE SPECIFIED)
     Route: 042
     Dates: start: 20100222, end: 20100726
  2. FLUDARA [Suspect]
     Indication: CHRONIC LYMPHOCYTIC LEUKAEMIA
     Dosage: 50 MG, FOR 3 DAYS EVERY 4 WEEKS, INTRAVENOUS (NOT OTHERWISE SPECIFIED)
     Route: 042
     Dates: start: 20100222, end: 20100728
  3. DEXAMETHASONE SODIUM PHOSPHATE [Suspect]
     Indication: CHRONIC LYMPHOCYTIC LEUKAEMIA
     Dosage: 10 MG, DAILY FOR 3 DAYS EVERY 4 WEEKS, INTRAVANEOUS (NOT OTHERWISE SPECIFIED)
     Route: 042
     Dates: start: 20100222, end: 20100728

REACTIONS (3)
  - MUSCLE TWITCHING [None]
  - MENTAL STATUS CHANGES [None]
  - URINARY TRACT INFECTION [None]
